FAERS Safety Report 17362967 (Version 2)
Quarter: 2020Q1

REPORT INFORMATION
  Report Type: Spontaneous
  Country: GB (occurrence: GB)
  Receive Date: 20200203
  Receipt Date: 20200213
  Transmission Date: 20200409
  Serious: Yes (Death, Other)
  Sender: FDA-Public Use
  Company Number: GB-FERRINGPH-2020FE00499

PATIENT
  Sex: Male

DRUGS (2)
  1. MENOPUR [Suspect]
     Active Substance: FOLLITROPIN\LUTEINIZING HORMONE
     Dosage: 225 IU DAILY FOR 7 DAYS OF A 10 DAYS SCHEDULE
     Route: 065
     Dates: start: 2017, end: 2017
  2. MENOPUR [Suspect]
     Active Substance: FOLLITROPIN\LUTEINIZING HORMONE
     Indication: IN VITRO FERTILISATION
     Dosage: 450 IU, DAILY FOR 3 DAYS
     Route: 065
     Dates: start: 2017, end: 2017

REACTIONS (6)
  - Choking [Fatal]
  - Polymicrogyria [Unknown]
  - Hypotonia neonatal [Unknown]
  - Hypospadias [Unknown]
  - Macrocephaly [Unknown]
  - Cryptorchism [Unknown]
